FAERS Safety Report 7955708-8 (Version None)
Quarter: 2011Q4

REPORT INFORMATION
  Report Type: 
  Country: None (occurrence: None)
  Receive Date: 20111204
  Receipt Date: 20111111
  Transmission Date: 20120403
  Serious: No
  Sender: FDA-Public Use
  Company Number: US-ROXANE LABORATORIES, INC.-2011-RO-01641RO

PATIENT
  Sex: Female

DRUGS (5)
  1. POTASSIUM ACETATE [Concomitant]
  2. COREG [Concomitant]
  3. COZAAR [Concomitant]
  4. ASPIRIN [Concomitant]
  5. FUROSEMIDE [Suspect]
     Indication: DIURETIC THERAPY
     Dosage: 40 MG
     Route: 048

REACTIONS (1)
  - HYPERTENSION [None]
